FAERS Safety Report 16412513 (Version 1)
Quarter: 2019Q2

REPORT INFORMATION
  Report Type: Spontaneous
  Country: CN (occurrence: CN)
  Receive Date: 20190610
  Receipt Date: 20190610
  Transmission Date: 20190711
  Serious: Yes (Other)
  Sender: FDA-Public Use
  Company Number: CN-009507513-1906CHN000613

PATIENT
  Age: 76 Year
  Sex: Female
  Weight: 72 kg

DRUGS (1)
  1. TIENAM [Suspect]
     Active Substance: CILASTATIN SODIUM\IMIPENEM
     Indication: INFECTION
     Dosage: 500 MILLIGRAM, TID
     Route: 041
     Dates: start: 20190513, end: 20190516

REACTIONS (2)
  - Urinary tract obstruction [Recovering/Resolving]
  - Blood creatinine increased [Recovering/Resolving]

NARRATIVE: CASE EVENT DATE: 20190517
